FAERS Safety Report 9974629 (Version 1)
Quarter: 2014Q1

REPORT INFORMATION
  Report Type: Report from Study
  Country: US (occurrence: US)
  Receive Date: 20140306
  Receipt Date: 20140306
  Transmission Date: 20141002
  Serious: No
  Sender: FDA-Public Use
  Company Number: US-ABBVIE-13P-163-1156412-00

PATIENT
  Age: 45 Year
  Sex: Female
  Weight: 74.91 kg

DRUGS (9)
  1. HUMIRA [Suspect]
     Indication: RHEUMATOID ARTHRITIS
     Dates: end: 20130818
  2. METHOTREXATE [Concomitant]
     Indication: RHEUMATOID ARTHRITIS
  3. HYDROXYCHLOROQUINE [Concomitant]
     Indication: RHEUMATOID ARTHRITIS
  4. FOLIC ACID [Concomitant]
     Indication: VITAMIN SUPPLEMENTATION
  5. CALCIUM + VITAMIN D [Concomitant]
     Indication: MINERAL SUPPLEMENTATION
  6. CALCIUM + VITAMIN D [Concomitant]
     Indication: VITAMIN SUPPLEMENTATION
  7. FEXOFENADINE HCL [Concomitant]
     Indication: SEASONAL ALLERGY
  8. CAMRESE [Concomitant]
     Indication: UTERINE CYST
  9. CAMRESE [Concomitant]
     Indication: HAEMORRHAGIC CYST

REACTIONS (8)
  - Fatigue [Recovered/Resolved]
  - Night sweats [Recovered/Resolved]
  - Chest pain [Recovered/Resolved]
  - Back pain [Recovered/Resolved]
  - Neck pain [Recovered/Resolved]
  - Flank pain [Recovered/Resolved]
  - Bronchitis viral [Recovered/Resolved]
  - Viral rash [Not Recovered/Not Resolved]
